FAERS Safety Report 9324397 (Version 3)
Quarter: 2013Q3

REPORT INFORMATION
  Report Type: Report from Study
  Country: JP (occurrence: JP)
  Receive Date: 20130603
  Receipt Date: 20130826
  Transmission Date: 20140515
  Serious: Yes (Life-Threatening)
  Sender: FDA-Public Use
  Company Number: PHHY2013JP055045

PATIENT
  Age: 34 Year
  Sex: Male

DRUGS (13)
  1. FTY 720 [Suspect]
     Indication: MULTIPLE SCLEROSIS
     Dosage: 0.5 MG, QD
     Route: 048
     Dates: start: 20130410, end: 20130513
  2. BAKTAR [Suspect]
     Indication: INFECTION PROPHYLAXIS
     Dosage: 1 DF, UNK
     Route: 048
     Dates: start: 20130404, end: 20130513
  3. PREDONINE [Concomitant]
     Dosage: 15 MG, UNK
     Route: 048
     Dates: end: 20130409
  4. PREDONINE [Concomitant]
     Dosage: 12.5 MG, UNK
     Route: 048
     Dates: start: 20130410
  5. PREDONINE [Concomitant]
     Dosage: 25 MG, UNK
     Dates: start: 20130608
  6. PREDONINE [Concomitant]
     Dosage: 50 MG, PER DAY
     Route: 048
     Dates: start: 20130611, end: 20130624
  7. PREDONINE [Concomitant]
     Dosage: 40 MG, PER DAY
     Route: 048
     Dates: start: 20130625, end: 20130703
  8. PREDONINE [Concomitant]
     Dosage: 45 MG, PER DAY
     Route: 048
     Dates: start: 20130704, end: 20130710
  9. PREDONINE [Concomitant]
     Dosage: 40 MG, PER DAY
     Route: 048
     Dates: start: 20130711, end: 20130724
  10. PREDONINE [Concomitant]
     Dosage: 35 MG, UNK
     Route: 048
     Dates: start: 20130725, end: 20130804
  11. PREDONINE [Concomitant]
     Dosage: 30 MG, UNK
     Route: 048
     Dates: start: 20130805
  12. LYRICA [Concomitant]
     Dosage: 150 MG, UNK
     Route: 048
  13. TAKEPRON [Concomitant]
     Dosage: 15 MG, UNK
     Route: 048

REACTIONS (4)
  - Toxic skin eruption [Recovered/Resolved]
  - Eosinophil count increased [Recovered/Resolved]
  - Gamma-glutamyltransferase increased [Not Recovered/Not Resolved]
  - Lymphocyte count decreased [Recovered/Resolved]
